FAERS Safety Report 18673871 (Version 1)
Quarter: 2020Q4

REPORT INFORMATION
  Report Type: Spontaneous
  Country: GB (occurrence: GB)
  Receive Date: 20201229
  Receipt Date: 20201229
  Transmission Date: 20210114
  Serious: Yes (Hospitalization)
  Sender: FDA-Public Use
  Company Number: GB-SUN PHARMACEUTICAL INDUSTRIES LTD-2020RR-272714

PATIENT
  Age: 18 Year
  Sex: Male
  Weight: 77.01 kg

DRUGS (1)
  1. ISOTRETINOIN. [Suspect]
     Active Substance: ISOTRETINOIN
     Indication: ACNE
     Dosage: 40 MILLIGRAM, UNK
     Route: 048
     Dates: start: 20190310, end: 20190410

REACTIONS (9)
  - Memory impairment [Unknown]
  - Cognitive disorder [Not Recovered/Not Resolved]
  - Anger [Unknown]
  - Mood swings [Unknown]
  - Brain injury [Unknown]
  - Emotional poverty [Unknown]
  - Cerebrovascular disorder [Unknown]
  - Panic attack [Unknown]
  - Insomnia [Unknown]

NARRATIVE: CASE EVENT DATE: 20190312
